FAERS Safety Report 19314000 (Version 1)
Quarter: 2021Q2

REPORT INFORMATION
  Report Type: Spontaneous
  Country: US (occurrence: US)
  Receive Date: 20210527
  Receipt Date: 20210527
  Transmission Date: 20210717
  Serious: Yes (Hospitalization)
  Sender: FDA-Public Use
  Company Number: None

PATIENT
  Age: 87 Year
  Sex: Male

DRUGS (18)
  1. CEFUROXIME. [Concomitant]
     Active Substance: CEFUROXIME
  2. TAMSULOSIN [Concomitant]
     Active Substance: TAMSULOSIN
  3. ELIQUIS [Concomitant]
     Active Substance: APIXABAN
  4. TELMISARTAN. [Concomitant]
     Active Substance: TELMISARTAN
  5. FUROSEMIDE. [Concomitant]
     Active Substance: FUROSEMIDE
  6. ASPIRIN. [Concomitant]
     Active Substance: ASPIRIN
  7. CYCLOBENZAPR [Concomitant]
     Active Substance: CYCLOBENZAPRINE
  8. GABAPENTIN. [Concomitant]
     Active Substance: GABAPENTIN
  9. VYNDAMAX [Suspect]
     Active Substance: TAFAMIDIS
     Indication: CARDIOMYOPATHY
     Route: 048
     Dates: start: 20201223
  10. ACETAMIN [Concomitant]
     Active Substance: ACETAMINOPHEN
  11. SPIRONOLACT [Concomitant]
     Active Substance: SPIRONOLACTONE
  12. AMIODARONE [Concomitant]
     Active Substance: AMIODARONE
  13. FINSTERIDE [Concomitant]
  14. TRAZODONE [Concomitant]
     Active Substance: TRAZODONE HYDROCHLORIDE
  15. AMITIZA [Concomitant]
     Active Substance: LUBIPROSTONE
  16. NITROFUR MAC [Concomitant]
     Active Substance: NITROFURANTOIN
  17. PREGABALIN. [Concomitant]
     Active Substance: PREGABALIN
  18. TRMADOL HCL [Concomitant]

REACTIONS (2)
  - Urinary tract infection [None]
  - Therapy interrupted [None]

NARRATIVE: CASE EVENT DATE: 20210526
